FAERS Safety Report 4757925-7 (Version None)
Quarter: 2005Q3

REPORT INFORMATION
  Report Type: 
  Country: None (occurrence: None)
  Receive Date: 20050830
  Receipt Date: 20050811
  Transmission Date: 20060218
  Serious: Yes (Disabling)
  Sender: FDA-Public Use
  Company Number: 1884

PATIENT
  Age: 75 Year
  Sex: Male
  Weight: 80 kg

DRUGS (6)
  1. ONTAK [Suspect]
     Indication: B-CELL SMALL LYMPHOCYTIC LYMPHOMA
     Dosage: 18 UG/KG/D QD IV
     Route: 042
     Dates: start: 20050412, end: 20050811
  2. ONTAK [Suspect]
     Indication: CHRONIC LYMPHOCYTIC LEUKAEMIA
     Dosage: 18 UG/KG/D QD IV
     Route: 042
     Dates: start: 20050412, end: 20050811
  3. LEVOTHYROXINE SODIUM [Concomitant]
  4. LISINOPRIL [Concomitant]
  5. LORATADINE [Concomitant]
  6. PHENTERMINE [Concomitant]

REACTIONS (5)
  - COLOUR BLINDNESS [None]
  - PARANEOPLASTIC SYNDROME [None]
  - RETINAL DEGENERATION [None]
  - RETINOPATHY [None]
  - VISUAL ACUITY REDUCED [None]
